FAERS Safety Report 6214168-8 (Version None)
Quarter: 2009Q2

REPORT INFORMATION
  Report Type: 
  Country: None (occurrence: None)
  Receive Date: 20090601
  Receipt Date: 20090601
  Transmission Date: 20091009
  Serious: Yes (Other)
  Sender: FDA-Public Use
  Company Number: None

PATIENT
  Age: 56 Year
  Sex: Male
  Weight: 74.0996 kg

DRUGS (1)
  1. VANCOMYCIN HCL [Suspect]
     Indication: OSTEOARTHRITIS
     Dosage: 1.5 GM Q12H IV
     Route: 042
     Dates: start: 20090402, end: 20090419

REACTIONS (1)
  - UNEVALUABLE EVENT [None]
